FAERS Safety Report 13674875 (Version 1)
Quarter: 2017Q2

REPORT INFORMATION
  Report Type: Spontaneous
  Country: US (occurrence: US)
  Receive Date: 20170621
  Receipt Date: 20170621
  Transmission Date: 20170830
  Serious: No
  Sender: FDA-Public Use
  Company Number: US-PFIZER INC-2017267335

PATIENT
  Age: 76 Year
  Sex: Female
  Weight: 92 kg

DRUGS (1)
  1. CORTISONE ACETATE. [Suspect]
     Active Substance: CORTISONE ACETATE
     Dosage: UNK

REACTIONS (1)
  - Insomnia [Unknown]
